FAERS Safety Report 7485942-5 (Version None)
Quarter: 2011Q2

REPORT INFORMATION
  Report Type: 
  Country: None (occurrence: None)
  Receive Date: 20110517
  Receipt Date: 20110209
  Transmission Date: 20111010
  Serious: Yes (Other)
  Sender: FDA-Public Use
  Company Number: US-BAYER-2011-013922

PATIENT
  Age: 54 Year
  Sex: Female
  Weight: 85 kg

DRUGS (2)
  1. ALEVE (CAPLET) [Suspect]
     Indication: PRODUCT USED FOR UNKNOWN INDICATION
     Dosage: 1 DF, UNK
     Route: 048
  2. PREDNISONE TAB [Concomitant]
     Dosage: UNK

REACTIONS (6)
  - COLOUR BLINDNESS [None]
  - LOSS OF CONSCIOUSNESS [None]
  - BURNING SENSATION [None]
  - BLINDNESS TRANSIENT [None]
  - OEDEMA PERIPHERAL [None]
  - ANAPHYLACTIC SHOCK [None]
